FAERS Safety Report 15489332 (Version 1)
Quarter: 2018Q4

REPORT INFORMATION
  Report Type: Spontaneous
  Country: US (occurrence: US)
  Receive Date: 20181011
  Receipt Date: 20181011
  Transmission Date: 20190205
  Serious: Yes (Disabling, Other)
  Sender: FDA-Public Use
  Company Number: None

PATIENT
  Age: 54 Year
  Sex: Female
  Weight: 53.1 kg

DRUGS (1)
  1. LEVOFLOXACIN TABLETS 500 MG [Suspect]
     Active Substance: LEVOFLOXACIN
     Indication: KIDNEY INFECTION
     Dosage: ?          QUANTITY:1 TABLET(S);?
     Route: 048
     Dates: start: 20180820, end: 20180824

REACTIONS (14)
  - Tendon rupture [None]
  - Pain in extremity [None]
  - Dysphagia [None]
  - Nausea [None]
  - Paraesthesia [None]
  - Peripheral swelling [None]
  - Tendon pain [None]
  - Hyperhidrosis [None]
  - Hypoaesthesia [None]
  - Throat tightness [None]
  - Joint swelling [None]
  - Muscle twitching [None]
  - Presyncope [None]
  - Arthralgia [None]

NARRATIVE: CASE EVENT DATE: 20180820
